FAERS Safety Report 4806954-3 (Version None)
Quarter: 2005Q4

REPORT INFORMATION
  Report Type: 
  Country: None (occurrence: None)
  Receive Date: 20051024
  Receipt Date: 20051012
  Transmission Date: 20060501
  Serious: Yes (Other)
  Sender: FDA-Public Use
  Company Number: FR-BRISTOL-MYERS SQUIBB COMPANY-13143268

PATIENT
  Age: 5 Year
  Sex: Male

DRUGS (1)
  1. MUCOMYST [Suspect]

REACTIONS (1)
  - LARYNGITIS [None]
